FAERS Safety Report 22993885 (Version 3)
Quarter: 2024Q1

REPORT INFORMATION
  Report Type: Spontaneous
  Country: DE (occurrence: DE)
  Receive Date: 20230927
  Receipt Date: 20240112
  Transmission Date: 20240410
  Serious: Yes (Hospitalization, Other)
  Sender: FDA-Public Use
  Company Number: DE-KOREA IPSEN Pharma-2023-21818

PATIENT
  Sex: Female

DRUGS (20)
  1. CABOMETYX [Suspect]
     Active Substance: CABOZANTINIB S-MALATE
     Indication: Renal cell carcinoma
     Dosage: 40 MG
     Route: 048
     Dates: start: 20220210
  2. CABOMETYX [Suspect]
     Active Substance: CABOZANTINIB S-MALATE
     Dosage: 20 MG, QD
     Route: 048
  3. CABOMETYX [Suspect]
     Active Substance: CABOZANTINIB S-MALATE
     Dosage: 40 MG, QD
     Route: 048
  4. CABOMETYX [Suspect]
     Active Substance: CABOZANTINIB S-MALATE
     Dosage: 20 MG
     Route: 048
     Dates: start: 20230123
  5. CABOMETYX [Suspect]
     Active Substance: CABOZANTINIB S-MALATE
     Dosage: 40 MG
     Route: 048
     Dates: start: 20230807
  6. NIVOLUMAB [Suspect]
     Active Substance: NIVOLUMAB
     Indication: Renal cell carcinoma
     Dosage: 480 MG, Q4WEEKS
     Route: 065
     Dates: start: 20220220
  7. NIVOLUMAB [Suspect]
     Active Substance: NIVOLUMAB
     Dosage: 480 MG
     Route: 065
     Dates: start: 20221121
  8. NIVOLUMAB [Suspect]
     Active Substance: NIVOLUMAB
     Dosage: 480 MG
     Route: 065
     Dates: start: 20221219
  9. NIVOLUMAB [Suspect]
     Active Substance: NIVOLUMAB
     Dosage: 480 MG
     Route: 065
     Dates: start: 20230116
  10. LENVATINIB [Suspect]
     Active Substance: LENVATINIB
     Indication: Renal cell carcinoma
     Dosage: 18 MG
     Route: 065
     Dates: start: 20220224, end: 20230227
  11. LENVATINIB [Suspect]
     Active Substance: LENVATINIB
     Dosage: 18 MG
     Route: 065
     Dates: start: 20230310, end: 20230403
  12. LENVATINIB [Suspect]
     Active Substance: LENVATINIB
     Dosage: 18 MG
     Route: 065
     Dates: start: 20230621, end: 20230703
  13. EVEROLIMUS [Suspect]
     Active Substance: EVEROLIMUS
     Indication: Renal cell carcinoma
     Dosage: 5 MG
     Route: 065
     Dates: start: 20220224, end: 20230227
  14. EVEROLIMUS [Suspect]
     Active Substance: EVEROLIMUS
     Dosage: 18 MG
     Route: 065
     Dates: start: 20230310, end: 20230403
  15. EVEROLIMUS [Suspect]
     Active Substance: EVEROLIMUS
     Dosage: 18 MG
     Route: 065
     Dates: start: 20230621, end: 20230703
  16. METOPROLOL [Concomitant]
     Active Substance: METOPROLOL
     Indication: Product used for unknown indication
     Route: 065
  17. DOXAZOSIN [Concomitant]
     Active Substance: DOXAZOSIN MESYLATE
     Indication: Product used for unknown indication
     Route: 065
  18. CANDESARTAN [Concomitant]
     Active Substance: CANDESARTAN
     Indication: Product used for unknown indication
     Route: 065
  19. AMLODIPINE [Concomitant]
     Active Substance: AMLODIPINE BESYLATE
     Indication: Product used for unknown indication
     Route: 065
  20. LEVOTHYROXINE SODIUM [Concomitant]
     Active Substance: LEVOTHYROXINE SODIUM
     Indication: Product used for unknown indication
     Route: 065

REACTIONS (9)
  - General physical health deterioration [Unknown]
  - Infection [Unknown]
  - Urinary tract infection [Unknown]
  - Dizziness [Unknown]
  - Blood creatinine increased [Unknown]
  - Hyponatraemia [Unknown]
  - Malignant neoplasm progression [Unknown]
  - Blood thyroid stimulating hormone increased [Unknown]
  - Diarrhoea [Unknown]
